FAERS Safety Report 5422707-X (Version None)
Quarter: 2007Q3

REPORT INFORMATION
  Report Type: 
  Country: None (occurrence: None)
  Receive Date: 20070822
  Receipt Date: 20070817
  Transmission Date: 20080115
  Serious: Yes (Death)
  Sender: FDA-Public Use
  Company Number: BR-ROXANE LABORATORIES, INC-2007-DE-04868GD

PATIENT
  Sex: Female

DRUGS (4)
  1. PREDNISONE [Suspect]
     Indication: PULMONARY SARCOIDOSIS
  2. PREDNISONE [Suspect]
     Indication: GRANULOMATOUS LIVER DISEASE
  3. SPIRONOLACTONE [Concomitant]
  4. FUROSEMIDE [Concomitant]

REACTIONS (2)
  - CUSHING'S SYNDROME [None]
  - DEATH [None]
